FAERS Safety Report 5208924-2 (Version None)
Quarter: 2007Q1

REPORT INFORMATION
  Report Type: 
  Country: None (occurrence: None)
  Receive Date: 20070116
  Receipt Date: 20070108
  Transmission Date: 20070707
  Serious: Yes (Other)
  Sender: FDA-Public Use
  Company Number: PHEH2006US15249

PATIENT
  Age: 70 Year
  Sex: Female

DRUGS (1)
  1. LOTREL [Suspect]
     Indication: HYPERTENSION
     Dosage: 5/20 MG, QD
     Route: 048
     Dates: start: 20020101, end: 20061212

REACTIONS (9)
  - ANGIOEDEMA [None]
  - DYSARTHRIA [None]
  - EAR PAIN [None]
  - FACIAL PALSY [None]
  - LARYNGEAL OEDEMA [None]
  - PAIN IN JAW [None]
  - SWELLING [None]
  - SWOLLEN TONGUE [None]
  - TEMPOROMANDIBULAR JOINT SYNDROME [None]
